FAERS Safety Report 12933466 (Version 7)
Quarter: 2017Q2

REPORT INFORMATION
  Report Type: Spontaneous
  Country: US (occurrence: US)
  Receive Date: 20161111
  Receipt Date: 20170406
  Transmission Date: 20170830
  Serious: Yes (Death)
  Sender: FDA-Public Use
  Company Number: US-CELGENEUS-USA-2016110142

PATIENT
  Age: 86 Year
  Sex: Female
  Weight: 76.73 kg

DRUGS (1)
  1. REVLIMID [Suspect]
     Active Substance: LENALIDOMIDE
     Indication: CENTRAL NERVOUS SYSTEM LYMPHOMA
     Dosage: 15MG
     Route: 048
     Dates: start: 20161001, end: 20161022

REACTIONS (2)
  - Central nervous system lymphoma [Fatal]
  - Therapy non-responder [Fatal]

NARRATIVE: CASE EVENT DATE: 201610
